FAERS Safety Report 25860210 (Version 1)
Quarter: 2025Q3

REPORT INFORMATION
  Report Type: Spontaneous
  Country: EU (occurrence: EU)
  Receive Date: 20250929
  Receipt Date: 20250929
  Transmission Date: 20251021
  Serious: Yes (Disabling)
  Sender: VIIV
  Company Number: EU-GSKCCFEMEA-Case-02358474_AE-98559

PATIENT
  Sex: Male
  Weight: 95 kg

DRUGS (4)
  1. CABOTEGRAVIR [Suspect]
     Active Substance: CABOTEGRAVIR
     Indication: Product used for unknown indication
     Dosage: UNK, Q2M
  2. CABOTEGRAVIR [Suspect]
     Active Substance: CABOTEGRAVIR
  3. CABOTEGRAVIR [Suspect]
     Active Substance: CABOTEGRAVIR
  4. RILPIVIRINE [Suspect]
     Active Substance: RILPIVIRINE
     Indication: Product used for unknown indication
     Dosage: UNK, Q2M

REACTIONS (3)
  - Injection site pain [Recovered/Resolved with Sequelae]
  - Underdose [Unknown]
  - Sciatica [Unknown]
